FAERS Safety Report 6153375-X (Version None)
Quarter: 2009Q2

REPORT INFORMATION
  Report Type: 
  Country: None (occurrence: None)
  Receive Date: 20090409
  Receipt Date: 20090409
  Transmission Date: 20091009
  Serious: Yes (Hospitalization)
  Sender: FDA-Public Use
  Company Number: None

PATIENT
  Age: 11 Year
  Sex: Male
  Weight: 87 kg

DRUGS (1)
  1. PEG - ASPARAGASE [Suspect]
     Indication: ACUTE LYMPHOCYTIC LEUKAEMIA
     Dosage: 4900 IUNIT IM X 1
     Route: 030
     Dates: start: 20090327

REACTIONS (2)
  - SWELLING [None]
  - URTICARIA [None]
